FAERS Safety Report 4696696-X (Version None)
Quarter: 2005Q2

REPORT INFORMATION
  Report Type: 
  Country: None (occurrence: None)
  Receive Date: 20050620
  Receipt Date: 20050610
  Transmission Date: 20051028
  Serious: Yes (Other)
  Sender: FDA-Public Use
  Company Number: 26760

PATIENT
  Age: 25 Year
  Sex: Female

DRUGS (1)
  1. ALDARA [Suspect]
     Indication: KELOID SCAR
     Dosage: 0.1 SACHET, 1 IN 1 DAY (S), TOPICAL
     Route: 061
     Dates: start: 20050101, end: 20050101

REACTIONS (2)
  - SCAR [None]
  - WOUND DEHISCENCE [None]
